FAERS Safety Report 6556435-4 (Version None)
Quarter: 2010Q1

REPORT INFORMATION
  Report Type: 
  Country: None (occurrence: None)
  Receive Date: 20100128
  Receipt Date: 20100122
  Transmission Date: 20100710
  Serious: Yes (Other)
  Sender: FDA-Public Use
  Company Number: B0628583A

PATIENT
  Age: 55 Year
  Sex: Male

DRUGS (5)
  1. LAMICTAL [Suspect]
     Indication: DRUG USE FOR UNKNOWN INDICATION
     Dosage: 150MG PER DAY
     Route: 048
     Dates: start: 20090601
  2. ESPERAL [Suspect]
     Dosage: 500MG PER DAY
     Route: 048
     Dates: start: 20020101
  3. CRESTOR [Suspect]
     Indication: DRUG USE FOR UNKNOWN INDICATION
     Dosage: 5MG PER DAY
     Route: 048
     Dates: start: 20080101, end: 20100108
  4. BIPROFENID [Suspect]
     Indication: DRUG USE FOR UNKNOWN INDICATION
     Dosage: 150MG AS REQUIRED
     Route: 048
     Dates: start: 20070101, end: 20091225
  5. IXPRIM [Suspect]
     Indication: DRUG USE FOR UNKNOWN INDICATION
     Route: 048
     Dates: start: 20070101, end: 20091225

REACTIONS (3)
  - DYSAESTHESIA [None]
  - GAIT DISTURBANCE [None]
  - PERIPHERAL SENSORIMOTOR NEUROPATHY [None]
